FAERS Safety Report 11230441 (Version 1)
Quarter: 2015Q2

REPORT INFORMATION
  Report Type: Spontaneous
  Country: US (occurrence: None)
  Receive Date: 20150630
  Receipt Date: 20150630
  Transmission Date: 20150821
  Serious: Yes (Disabling)
  Sender: FDA-Public Use
  Company Number: None

PATIENT
  Age: 55 Year
  Sex: Female
  Weight: 68.49 kg

DRUGS (8)
  1. LEVOFLOXACIN 750 MG [Suspect]
     Active Substance: LEVOFLOXACIN
     Indication: PERIPHERAL SWELLING
     Route: 048
     Dates: start: 20150627, end: 20150628
  2. PREDNISONE 20 MG [Suspect]
     Active Substance: PREDNISONE
     Indication: FEELING HOT
     Route: 048
     Dates: start: 20150627, end: 20150628
  3. PREDNISONE 20 MG [Suspect]
     Active Substance: PREDNISONE
     Indication: PERIPHERAL SWELLING
     Route: 048
     Dates: start: 20150627, end: 20150628
  4. PEPCID [Concomitant]
     Active Substance: FAMOTIDINE
  5. PREDNISONE 20 MG [Suspect]
     Active Substance: PREDNISONE
     Indication: PRURITUS
     Route: 048
     Dates: start: 20150627, end: 20150628
  6. ALLEGRA [Concomitant]
     Active Substance: FEXOFENADINE HYDROCHLORIDE
  7. LEVOFLOXACIN 750 MG [Suspect]
     Active Substance: LEVOFLOXACIN
     Indication: PRURITUS
     Route: 048
     Dates: start: 20150627, end: 20150628
  8. LEVOFLOXACIN 750 MG [Suspect]
     Active Substance: LEVOFLOXACIN
     Indication: FEELING HOT
     Route: 048
     Dates: start: 20150627, end: 20150628

REACTIONS (4)
  - Pain [None]
  - Arthralgia [None]
  - Screaming [None]
  - Paraesthesia [None]

NARRATIVE: CASE EVENT DATE: 20150628
